FAERS Safety Report 19772094 (Version 2)
Quarter: 2021Q3

REPORT INFORMATION
  Report Type: Spontaneous
  Country: IN (occurrence: IN)
  Receive Date: 20210831
  Receipt Date: 20210831
  Transmission Date: 20211014
  Serious: Yes (Death, Hospitalization)
  Sender: FDA-Public Use
  Company Number: IN-PFIZER INC-2018402035

PATIENT
  Age: 60 Year
  Sex: Female

DRUGS (10)
  1. LETROZE [Concomitant]
     Dosage: 1 DF, DAILY (0?0?1)
  2. ULTRACET [Concomitant]
     Active Substance: ACETAMINOPHEN\TRAMADOL HYDROCHLORIDE
     Indication: PAIN
     Dosage: 1 DF, 3X/DAY (1?1?1)
  3. SHELCAL [CALCIUM;COLECALCIFEROL] [Concomitant]
     Active Substance: CALCIUM\CHOLECALCIFEROL
     Dosage: 1 DF, 2X/DAY (1?0?1)
  4. PALBACE [Suspect]
     Active Substance: PALBOCICLIB
     Indication: BREAST CANCER METASTATIC
     Dosage: 125 MG, ONCE A DAY
     Route: 048
     Dates: start: 20171014
  5. ZOBONE [Concomitant]
     Active Substance: ZOLEDRONIC ACID
     Dosage: UNK
  6. CROCIN [PARACETAMOL] [Concomitant]
     Dosage: 500 MG, AFTER DINNER
  7. DOMSTAL [DOMPERIDONE] [Concomitant]
     Indication: VOMITING
     Dosage: 2 DF, 3X/DAY (2?2?2)
  8. PAN [Concomitant]
     Indication: HYPERCHLORHYDRIA
     Dosage: 1 DF, 1X/DAY BEFORE FOOD (1?0?0)
  9. BECOSULES [ASCORBIC ACID;VITAMIN B NOS] [Concomitant]
     Dosage: 2 TSP, 2 TIMES A DAY
  10. HAEMUP [Concomitant]
     Dosage: 2 TSP, AFTER LUNCH DAILY

REACTIONS (2)
  - COVID-19 [Fatal]
  - Blood count abnormal [Unknown]
